FAERS Safety Report 9435196 (Version 1)
Quarter: 2013Q3

REPORT INFORMATION
  Report Type: Spontaneous
  Country: HU (occurrence: HU)
  Receive Date: 20130801
  Receipt Date: 20130801
  Transmission Date: 20140515
  Serious: Yes (Hospitalization)
  Sender: FDA-Public Use
  Company Number: HU-UCBSA-093074

PATIENT
  Age: 73 Year
  Sex: Female

DRUGS (5)
  1. CALCIUM [Concomitant]
     Indication: OSTEOPOROSIS
     Dosage: UNKNOWN DOSE, DAILY
     Route: 048
     Dates: start: 201207
  2. RISEDRONATE [Concomitant]
     Indication: OSTEOPOROSIS
     Dosage: UNKNOWN DOSE, WEEKLY
     Route: 048
     Dates: start: 201207
  3. METHYLPREDNISOLONE [Concomitant]
     Indication: RHEUMATOID ARTHRITIS
     Dosage: UNKNOWN DOSE, DAILY
     Route: 048
     Dates: start: 2010
  4. CIMZIA [Suspect]
     Indication: RHEUMATOID ARTHRITIS
     Route: 058
     Dates: start: 2012
  5. MELOXICAM [Concomitant]
     Indication: RHEUMATOID ARTHRITIS
     Dosage: UNKNOWN DOSE, DAILY
     Route: 048
     Dates: start: 201207

REACTIONS (4)
  - Diarrhoea [Recovered/Resolved]
  - Decreased appetite [Unknown]
  - Pain in extremity [Unknown]
  - Headache [Unknown]
